FAERS Safety Report 8682340 (Version 3)
Quarter: 2012Q4

REPORT INFORMATION
  Report Type: Report from Study
  Country: US (occurrence: US)
  Receive Date: 20120725
  Receipt Date: 20121126
  Transmission Date: 20130627
  Serious: Yes (Hospitalization)
  Sender: FDA-Public Use
  Company Number: US-CELGENEUS-163-50794-12071749

PATIENT
  Age: 71 Year
  Weight: 118.2 kg

DRUGS (8)
  1. VIDAZA [Suspect]
     Indication: ACUTE MYELOID LEUKEMIA
     Dosage: 117 Milligram
     Route: 058
     Dates: start: 20120619, end: 20120628
  2. ENTINOSTAT [Suspect]
     Indication: ACUTE MYELOID LEUKEMIA
     Dosage: 8 Milligram
     Route: 048
     Dates: start: 20120628, end: 20120705
  3. LASIX [Concomitant]
     Indication: DRUG USE FOR UNKNOWN INDICATION
     Dosage: 40 Milligram
     Route: 065
  4. HYDROXYUREA [Concomitant]
     Indication: DRUG USE FOR UNKNOWN INDICATION
     Dosage: 1500 Milligram
     Route: 065
  5. RED BLOOD CELLS [Concomitant]
     Indication: DRUG USE FOR UNKNOWN INDICATION
     Route: 041
  6. AVAPRO [Concomitant]
     Indication: HYPERTENSION
     Dosage: 150 Milligram
     Route: 065
  7. AVAPRO [Concomitant]
     Dosage: 50 Milligram
     Route: 065
  8. ARIMIDEX [Concomitant]
     Indication: DRUG USE FOR UNKNOWN INDICATION
     Dosage: 1 Milligram
     Route: 065

REACTIONS (1)
  - Oedema peripheral [Recovered/Resolved]
